FAERS Safety Report 9280357 (Version 1)
Quarter: 2013Q2

REPORT INFORMATION
  Report Type: Spontaneous
  Country: US (occurrence: None)
  Receive Date: 20130507
  Receipt Date: 20130507
  Transmission Date: 20140414
  Serious: Yes (Life-Threatening)
  Sender: FDA-Public Use
  Company Number: None

PATIENT
  Age: 82 Year
  Sex: Female
  Weight: 63.5 kg

DRUGS (2)
  1. SENSIPAR [Suspect]
     Indication: HYPERPARATHYROIDISM PRIMARY
     Route: 048
     Dates: start: 20130115, end: 20130304
  2. SENSIPAR [Suspect]
     Indication: HYPERPLASIA
     Route: 048
     Dates: start: 20130115, end: 20130304

REACTIONS (16)
  - Nausea [None]
  - Vomiting [None]
  - Dizziness [None]
  - Decreased appetite [None]
  - Somnolence [None]
  - Memory impairment [None]
  - Asthenia [None]
  - Lethargy [None]
  - Delirium [None]
  - Abdominal pain [None]
  - Hypercalcaemia [None]
  - Hypovolaemia [None]
  - Prerenal failure [None]
  - Hypersomnia [None]
  - Blood parathyroid hormone increased [None]
  - Activities of daily living impaired [None]
